FAERS Safety Report 4659667-5 (Version None)
Quarter: 2005Q2

REPORT INFORMATION
  Report Type: 
  Country: None (occurrence: None)
  Receive Date: 20050502
  Receipt Date: 20050318
  Transmission Date: 20051028
  Serious: No
  Sender: FDA-Public Use
  Company Number: 200418241US

PATIENT
  Age: 67 Year
  Sex: Female
  Weight: 76.3 kg

DRUGS (4)
  1. KETEK [Suspect]
     Indication: PNEUMONIA
     Dosage: TWO 400MG TABLETS MG QD PO
     Route: 048
     Dates: start: 20041002, end: 20041003
  2. BENAZEPRIL HYDROCHLORIDE (LOTENSIN) [Concomitant]
  3. HYDROCHLOROTHIAZIDE [Concomitant]
  4. PREDNISONE [Concomitant]

REACTIONS (6)
  - EAR DISCOMFORT [None]
  - ERYTHEMA [None]
  - HYPERTENSION [None]
  - HYPOACUSIS [None]
  - HYPOAESTHESIA [None]
  - SWELLING FACE [None]
